FAERS Safety Report 10065947 (Version 2)
Quarter: 2014Q2

REPORT INFORMATION
  Report Type: Spontaneous
  Country: US (occurrence: US)
  Receive Date: 20140408
  Receipt Date: 20140502
  Transmission Date: 20141212
  Serious: Yes (Other)
  Sender: FDA-Public Use
  Company Number: US-PFIZER INC-2014097027

PATIENT
  Age: 17 Year
  Sex: Male

DRUGS (1)
  1. QUILLIVANT XR [Suspect]
     Indication: ATTENTION DEFICIT/HYPERACTIVITY DISORDER
     Dosage: 20 MG, SINGLE
     Route: 048
     Dates: start: 20140404, end: 20140404

REACTIONS (6)
  - Drug dispensing error [Recovered/Resolved]
  - Confusional state [Recovered/Resolved]
  - Disorientation [Unknown]
  - Euphoric mood [Unknown]
  - Vomiting [Unknown]
  - Nausea [Unknown]
